FAERS Safety Report 6838809-7 (Version None)
Quarter: 2010Q3

REPORT INFORMATION
  Report Type: 
  Country: None (occurrence: None)
  Receive Date: 20100709
  Receipt Date: 20100625
  Transmission Date: 20110219
  Serious: Yes (Other)
  Sender: FDA-Public Use
  Company Number: 014585

PATIENT
  Sex: Female

DRUGS (1)
  1. KEPPRA [Suspect]
     Dosage: 500 MG BID, DOSE INCREASED

REACTIONS (7)
  - CONVERSION DISORDER [None]
  - CONVULSION [None]
  - DYSPHEMIA [None]
  - FAECAL INCONTINENCE [None]
  - FALL [None]
  - INSOMNIA [None]
  - URINARY INCONTINENCE [None]
